FAERS Safety Report 9498072 (Version 2)
Quarter: 2014Q2

REPORT INFORMATION
  Report Type: Spontaneous
  Country: US (occurrence: US)
  Receive Date: 20130904
  Receipt Date: 20140512
  Transmission Date: 20141212
  Serious: Yes (Hospitalization, Other)
  Sender: FDA-Public Use
  Company Number: US-BAYER-2013-105683

PATIENT
  Age: 27 Year
  Sex: Female
  Weight: 68.03 kg

DRUGS (9)
  1. MIRENA [Suspect]
     Indication: CONTRACEPTION
     Dosage: 20 MCG/24HR, CONT
     Route: 015
     Dates: start: 20070514, end: 20071106
  2. TRAMADOL [Concomitant]
     Indication: PAIN
     Dosage: UNK
     Dates: start: 2004, end: 2013
  3. SKELAXIN [Concomitant]
     Indication: MUSCLE RELAXANT THERAPY
     Dosage: UNK
     Dates: start: 2006, end: 2013
  4. TYLENOL WITH CODEINE [Concomitant]
     Dosage: UNK
     Dates: start: 20070212
  5. ZYRTEC [Concomitant]
  6. FLUOXETINE [Concomitant]
     Dosage: 20 MG, UNK
  7. PROZAC [Concomitant]
     Dosage: 20 MG, UNK
  8. SARAFEM [Concomitant]
     Dosage: 20 MG, UNK
  9. VIVELLE-DOT [Concomitant]

REACTIONS (7)
  - Device dislocation [None]
  - Vaginal haemorrhage [None]
  - Injury [None]
  - Medical device pain [None]
  - Infection [None]
  - Device dislocation [None]
  - Uterine perforation [None]
